FAERS Safety Report 22074943 (Version 2)
Quarter: 2023Q1

REPORT INFORMATION
  Report Type: Spontaneous
  Country: US (occurrence: US)
  Receive Date: 20230308
  Receipt Date: 20230317
  Transmission Date: 20230418
  Serious: Yes (Hospitalization)
  Sender: FDA-Public Use
  Company Number: US-SANOFI-01516983

PATIENT
  Age: 81 Year
  Sex: Male

DRUGS (1)
  1. INSULIN GLARGINE [Suspect]
     Active Substance: INSULIN GLARGINE
     Indication: Diabetes mellitus
     Dosage: 10 IU, PRN

REACTIONS (5)
  - Hospitalisation [Unknown]
  - Malaise [Unknown]
  - Blood glucose increased [Unknown]
  - Product storage error [Unknown]
  - Product prescribing issue [Unknown]
